FAERS Safety Report 6629945-9 (Version None)
Quarter: 2010Q1

REPORT INFORMATION
  Report Type: 
  Country: None (occurrence: None)
  Receive Date: 20100310
  Receipt Date: 20100310
  Transmission Date: 20100710
  Serious: Yes (Other)
  Sender: FDA-Public Use
  Company Number: None

PATIENT
  Sex: Female
  Weight: 60.3284 kg

DRUGS (1)
  1. METRONIDAZOLE HCL [Suspect]
     Indication: VAGINAL INFECTION
     Dosage: 2 A DAY 12HRS 7 DAYS (1ST DAY)

REACTIONS (7)
  - ABDOMINAL PAIN UPPER [None]
  - CHROMATURIA [None]
  - DIZZINESS [None]
  - DYSSTASIA [None]
  - SKIN DISCOLOURATION [None]
  - TONGUE DISCOLOURATION [None]
  - VOMITING [None]
